FAERS Safety Report 23920522 (Version 1)
Quarter: 2024Q2

REPORT INFORMATION
  Report Type: Spontaneous
  Country: US (occurrence: US)
  Receive Date: 20240530
  Receipt Date: 20240530
  Transmission Date: 20240716
  Serious: No
  Sender: FDA-Public Use
  Company Number: US-HALEON-2178900

PATIENT

DRUGS (3)
  1. SENSODYNE REPAIR AND PROTECT WHITENING [Suspect]
     Active Substance: STANNOUS FLUORIDE
     Indication: Gingival pain
  2. SENSODYNE REPAIR AND PROTECT WHITENING [Suspect]
     Active Substance: STANNOUS FLUORIDE
     Indication: Tooth whitening
  3. SENSODYNE REPAIR AND PROTECT WHITENING [Suspect]
     Active Substance: STANNOUS FLUORIDE
     Indication: Hyperaesthesia teeth

REACTIONS (3)
  - Therapeutic product effect incomplete [Unknown]
  - Product use in unapproved indication [Unknown]
  - Drug effective for unapproved indication [Unknown]
